FAERS Safety Report 7965089-1 (Version None)
Quarter: 2011Q4

REPORT INFORMATION
  Report Type: 
  Country: None (occurrence: None)
  Receive Date: 20111205
  Receipt Date: 20111118
  Transmission Date: 20120403
  Serious: Yes (Other)
  Sender: FDA-Public Use
  Company Number: IMP_05465_2011

PATIENT
  Age: 47 Year
  Sex: Male

DRUGS (1)
  1. BUPROPION HCL [Suspect]
     Indication: PANIC DISORDER
     Dosage: (150 DF, DAILY) ; (300 MG, TITRATED TO 300 MGS DAILY)

REACTIONS (7)
  - ANXIETY [None]
  - MOTOR DYSFUNCTION [None]
  - PANIC ATTACK [None]
  - COGNITIVE DISORDER [None]
  - CHEST PAIN [None]
  - AGITATION [None]
  - THERAPEUTIC RESPONSE DECREASED [None]
